FAERS Safety Report 7488376-2 (Version None)
Quarter: 2011Q2

REPORT INFORMATION
  Report Type: 
  Country: None (occurrence: None)
  Receive Date: 20110518
  Receipt Date: 20110513
  Transmission Date: 20111010
  Serious: Yes (Hospitalization)
  Sender: FDA-Public Use
  Company Number: CH-PFIZER INC-2011102719

PATIENT
  Age: 64 Year
  Sex: Female
  Weight: 52.5 kg

DRUGS (16)
  1. NORVASC [Suspect]
     Dosage: 5 MG, 1X/DAY
     Route: 048
     Dates: start: 20101201
  2. REMERON [Suspect]
     Dosage: 45 MG, 1X/DAY
     Route: 048
     Dates: start: 20101129, end: 20101212
  3. NEXIUM [Concomitant]
     Dosage: 40 MG, 1X/DAY
     Route: 048
     Dates: start: 20101119
  4. ARICEPT [Suspect]
     Dosage: 5 MG, 1X/DAY
     Route: 048
     Dates: start: 20101223, end: 20101228
  5. PERINDOPRIL ERBUMINE [Suspect]
     Dosage: 10 MG, 1X/DAY
     Route: 048
     Dates: start: 20101119
  6. ZYPREXA [Suspect]
     Dosage: 5 MG, 1X/DAY
     Route: 048
     Dates: start: 20101119, end: 20101121
  7. ZYPREXA [Suspect]
     Dosage: 10 MG, 1X/DAY
     Route: 048
     Dates: start: 20101122, end: 20101221
  8. SPIRIVA [Concomitant]
     Dosage: 0.036 MG, 1X/DAY
     Route: 048
     Dates: start: 20101119
  9. REMERON [Suspect]
     Dosage: 30 MG, 1X/DAY
     Route: 048
     Dates: start: 20101119, end: 20101128
  10. REMERON [Suspect]
     Dosage: 30 MG, 1X/DAY
     Route: 048
     Dates: start: 20101213
  11. ASPIRIN [Concomitant]
     Dosage: 100 MG, 1X/DAY
     Route: 048
     Dates: start: 20101119
  12. ARICEPT [Suspect]
     Dosage: 10 MG, 1X/DAY
     Route: 048
     Dates: start: 20101207, end: 20101222
  13. ZYPREXA [Suspect]
     Dosage: 5 MG, 1X/DAY
     Route: 048
     Dates: start: 20101222, end: 20110105
  14. ARICEPT [Suspect]
     Dosage: 5 MG, 1X/DAY
     Route: 048
     Dates: start: 20101206, end: 20101206
  15. ELTROXIN [Concomitant]
     Dosage: 0.05 MG, 1X/DAY
     Route: 048
     Dates: start: 20101119
  16. FORMOTEROL FUMARATE [Concomitant]
     Dosage: 0.24 MG, 1X/DAY
     Route: 048
     Dates: start: 20101119

REACTIONS (1)
  - ALTERED STATE OF CONSCIOUSNESS [None]
